FAERS Safety Report 5142989-1 (Version None)
Quarter: 2006Q4

REPORT INFORMATION
  Report Type: 
  Country: None (occurrence: None)
  Receive Date: 20061031
  Receipt Date: 20061031
  Transmission Date: 20070319
  Serious: Yes (Life-Threatening)
  Sender: FDA-Public Use
  Company Number: None

PATIENT
  Age: 69 Year
  Sex: Male
  Weight: 56.6996 kg

DRUGS (2)
  1. CARBOPLATIN [Suspect]
     Indication: NEOPLASM MALIGNANT
     Dosage: 80 MG X 8 WEEKS IV
     Route: 042
     Dates: start: 20060530, end: 20060717
  2. RADIATION [Suspect]
     Indication: NEOPLASM MALIGNANT
     Dosage: 9500 CGY AT 180 CGY DAILY
     Dates: start: 20060530, end: 20060720

REACTIONS (7)
  - CATHETER SITE PAIN [None]
  - FEEDING TUBE COMPLICATION [None]
  - GASTRIC PERFORATION [None]
  - HYPERGLYCAEMIA [None]
  - PNEUMONIA [None]
  - RENAL FAILURE [None]
  - SEPSIS [None]
